FAERS Safety Report 6293150-9 (Version None)
Quarter: 2009Q3

REPORT INFORMATION
  Report Type: 
  Country: None (occurrence: None)
  Receive Date: 20090731
  Receipt Date: 20090724
  Transmission Date: 20100115
  Serious: Yes (Hospitalization)
  Sender: FDA-Public Use
  Company Number: US-GILEAD-2009-0023146

PATIENT
  Sex: Female
  Weight: 83.082 kg

DRUGS (20)
  1. LETAIRIS [Suspect]
     Indication: PULMONARY ARTERIAL HYPERTENSION
     Route: 048
     Dates: start: 20090527
  2. REVATIO [Concomitant]
  3. TOPROL-XL [Concomitant]
  4. LASIX [Concomitant]
  5. DEMADEX [Concomitant]
  6. SPIRIVA [Concomitant]
  7. PROVENTIL-HFA [Concomitant]
  8. HUMALOG [Concomitant]
  9. HUMULIN N [Concomitant]
  10. PRINIVIL [Concomitant]
  11. PLAVIX [Concomitant]
  12. ZOCOR [Concomitant]
  13. ARANESP [Concomitant]
  14. FEOSOL [Concomitant]
  15. DRISDOL [Concomitant]
  16. SYNTHROID [Concomitant]
  17. CALCITRIOL [Concomitant]
  18. NEURONTIN [Concomitant]
  19. ASPIRIN [Concomitant]
  20. TYLENOL (CAPLET) [Concomitant]

REACTIONS (2)
  - CARDIAC FAILURE CONGESTIVE [None]
  - HYPOTENSION [None]
